FAERS Safety Report 23276140 (Version 1)
Quarter: 2023Q4

REPORT INFORMATION
  Report Type: Spontaneous
  Country: CO (occurrence: CO)
  Receive Date: 20231208
  Receipt Date: 20231208
  Transmission Date: 20240109
  Serious: Yes (Other)
  Sender: FDA-Public Use
  Company Number: CO-BAXTER-2023BAX037604

PATIENT
  Age: 26 Year
  Sex: Female
  Weight: 52.4 kg

DRUGS (16)
  1. IRON SUCROSE [Suspect]
     Active Substance: IRON SUCROSE
     Dosage: 100 MILLIGRAM (MG) (IRON III COMPLEX + HYDROXIDE-SARACATE), ADMINISTERED THROUGH A HEPARIN PUMP WITH
     Route: 042
     Dates: start: 20231124
  2. HEPARIN [Suspect]
     Active Substance: HEPARIN SODIUM
     Route: 065
  3. HYDROCORTISONE [Suspect]
     Active Substance: HYDROCORTISONE
     Indication: Angioedema
     Dosage: 100 MILLIGRAM (MG)
     Route: 042
     Dates: start: 20231124
  4. HYDROCORTISONE [Suspect]
     Active Substance: HYDROCORTISONE
     Indication: Paraesthesia
  5. CALCITRIOL [Concomitant]
     Active Substance: CALCITRIOL
     Dosage: 3 TABLETS DAILY
     Route: 065
  6. CALCITRIOL [Concomitant]
     Active Substance: CALCITRIOL
     Dosage: 2 TABLETS DAILY
     Route: 065
  7. ALUMINUM HYDROXIDE [Concomitant]
     Active Substance: ALUMINUM HYDROXIDE
     Dosage: 1 TABLET EVERY 8 HOURS
     Route: 065
  8. FOLIC ACID [Concomitant]
     Active Substance: FOLIC ACID
     Dosage: 2 TABLETS DAILY
     Route: 065
  9. CARVEDILOL [Concomitant]
     Active Substance: CARVEDILOL
     Dosage: 1 TABLET EVERY 12 HOURS
     Route: 065
  10. ENALAPRIL MALEATE [Concomitant]
     Active Substance: ENALAPRIL MALEATE
     Dosage: 1 TABLET EVERY 12 HOURS
     Route: 065
  11. LORATADINE [Concomitant]
     Active Substance: LORATADINE
     Dosage: 2 TABLETS DAILY FOR TWO DAYS, THEN 1 TABLET DAILY
     Route: 065
  12. PREDNISOLONE [Concomitant]
     Active Substance: PREDNISOLONE
     Dosage: 1 TABLET DAILY FOR 5 DAYS
     Route: 065
  13. CALCIUM GLUCONATE [Concomitant]
     Active Substance: CALCIUM GLUCONATE
     Dosage: 10ML, 2 AMPOULES INTRADIALYSIS TWICE A WEEK FOR 20 DAYS, SOLUTION
     Route: 065
  14. ASPIRIN [Concomitant]
     Active Substance: ASPIRIN
     Dosage: 1 TABLET DAILY
     Route: 065
  15. FUROSEMIDE [Concomitant]
     Active Substance: FUROSEMIDE
     Dosage: 1 TABLET DAILY
     Route: 065
  16. ATORVASTATIN CALCIUM [Concomitant]
     Active Substance: ATORVASTATIN CALCIUM
     Dosage: 2 TABLETS NIGHTLY
     Route: 065

REACTIONS (6)
  - Pharyngeal swelling [Recovered/Resolved]
  - Paraesthesia oral [Recovered/Resolved]
  - Angioedema [Recovered/Resolved]
  - Face oedema [Recovering/Resolving]
  - Lip oedema [Recovering/Resolving]
  - Paraesthesia [Recovered/Resolved]

NARRATIVE: CASE EVENT DATE: 20231124
